FAERS Safety Report 14018515 (Version 2)
Quarter: 2017Q3

REPORT INFORMATION
  Report Type: Report from Study
  Country: None (occurrence: IL)
  Receive Date: 20170928
  Receipt Date: 20170928
  Transmission Date: 20171128
  Serious: Yes (Hospitalization)
  Sender: FDA-Public Use
  Company Number: IL-ABBVIE-17K-082-2112193-00

PATIENT
  Sex: Male

DRUGS (1)
  1. DUODOPA [Suspect]
     Active Substance: CARBIDOPA\LEVODOPA
     Indication: PARKINSON^S DISEASE
     Dosage: MORNING DOSE 3ML,??CONTINUOUS DOSE 2ML/HOUR,??EXTRA DOSE 0.3ML.
     Route: 050
     Dates: start: 20150215

REACTIONS (2)
  - Device issue [Unknown]
  - Pneumonia [Recovering/Resolving]
